FAERS Safety Report 5968869-7 (Version None)
Quarter: 2008Q4

REPORT INFORMATION
  Report Type: 
  Country: None (occurrence: None)
  Receive Date: 20081125
  Receipt Date: 20081125
  Transmission Date: 20090506
  Serious: Yes (Life-Threatening)
  Sender: FDA-Public Use
  Company Number: None

PATIENT
  Age: 59 Year
  Sex: Female
  Weight: 67.1324 kg

DRUGS (3)
  1. ISOSORBIDE MONONITRATE [Suspect]
     Indication: HYPERTENSION
     Dosage: 30MG ONE AT A BEDTIME PO
     Route: 048
     Dates: start: 20081105, end: 20081124
  2. ISOSORBIDE MONONITRATE [Suspect]
     Indication: MYOCARDIAL INFARCTION
     Dosage: 30MG ONE AT A BEDTIME PO
     Route: 048
     Dates: start: 20081105, end: 20081124
  3. ISOSORBIDE MONONITRATE [Suspect]
     Indication: PULMONARY HYPERTENSION
     Dosage: 30MG ONE AT A BEDTIME PO
     Route: 048
     Dates: start: 20081105, end: 20081124

REACTIONS (7)
  - ANGIOPATHY [None]
  - BLOOD PRESSURE DECREASED [None]
  - LIP DISCOLOURATION [None]
  - PALLOR [None]
  - PRODUCT QUALITY ISSUE [None]
  - RASH [None]
  - URTICARIA [None]
